FAERS Safety Report 5778605-5 (Version None)
Quarter: 2008Q2

REPORT INFORMATION
  Report Type: 
  Country: None (occurrence: None)
  Receive Date: 20080601
  Receipt Date: 20080207
  Transmission Date: 20081010
  Serious: No
  Sender: FDA-Public Use
  Company Number: US200801001585

PATIENT
  Age: 71 Year
  Sex: Female
  Weight: 95.2 kg

DRUGS (8)
  1. BYETTA [Suspect]
     Indication: TYPE 2 DIABETES MELLITUS
     Dosage: 5 UG, 2/D, SUBCUTANEOUS ; 10 UG, 2/D, SUBCUTANEOUS
     Route: 058
     Dates: start: 20080104, end: 20080101
  2. BYETTA [Suspect]
     Indication: TYPE 2 DIABETES MELLITUS
     Dosage: 5 UG, 2/D, SUBCUTANEOUS ; 10 UG, 2/D, SUBCUTANEOUS
     Route: 058
     Dates: start: 20080101
  3. BYETTA [Suspect]
  4. METFORMIN HCL [Concomitant]
  5. LOTREL [Concomitant]
  6. TRIAMTERENE AND HYDROCHLOROTHIAZIDE (HYDROCHLOROTHIAZIDE, TRIAMTERENE) [Concomitant]
  7. CLARITIN /USA/ (LORATADINE) [Concomitant]
  8. PRAVASTATIN [Concomitant]

REACTIONS (6)
  - CONSTIPATION [None]
  - DYSPEPSIA [None]
  - ERUCTATION [None]
  - HEADACHE [None]
  - HUNGER [None]
  - REGURGITATION [None]
